FAERS Safety Report 5402313-3 (Version None)
Quarter: 2007Q3

REPORT INFORMATION
  Report Type: 
  Country: None (occurrence: None)
  Receive Date: 20070801
  Receipt Date: 20070725
  Transmission Date: 20080115
  Serious: Yes (Hospitalization)
  Sender: FDA-Public Use
  Company Number: SE-AVENTIS-200715823GDDC

PATIENT
  Age: 95 Year
  Sex: Female

DRUGS (8)
  1. MINIRIN [Suspect]
     Indication: NOCTURIA
     Dates: end: 20070601
  2. GLUCOSAMINE [Concomitant]
  3. BISACODYL [Concomitant]
  4. PARACETAMOL [Concomitant]
  5. GLYBURIDE [Concomitant]
  6. OXAZEPAM [Concomitant]
  7. CITALOPRAM HYDROBROMIDE [Concomitant]
  8. IDEOS                              /00944201/ [Concomitant]
     Route: 048

REACTIONS (4)
  - DRUG INTERACTION [None]
  - HYPONATRAEMIA [None]
  - NAUSEA [None]
  - VOMITING [None]
